FAERS Safety Report 21045238 (Version 2)
Quarter: 2022Q3

REPORT INFORMATION
  Report Type: Spontaneous
  Country: KR (occurrence: KR)
  Receive Date: 20220705
  Receipt Date: 20220719
  Transmission Date: 20221027
  Serious: No
  Sender: FDA-Public Use
  Company Number: KR-ABBVIE-22K-090-4457225-00

PATIENT
  Age: 30 Year

DRUGS (1)
  1. RINVOQ [Suspect]
     Active Substance: UPADACITINIB
     Indication: Dermatitis atopic
     Route: 048
     Dates: start: 202201

REACTIONS (1)
  - Eosinopenia [Not Recovered/Not Resolved]

NARRATIVE: CASE EVENT DATE: 20220601
